FAERS Safety Report 5157490-9 (Version None)
Quarter: 2006Q4

REPORT INFORMATION
  Report Type: 
  Country: None (occurrence: None)
  Receive Date: 20061127
  Receipt Date: 20031121
  Transmission Date: 20070319
  Serious: Yes (Hospitalization)
  Sender: FDA-Public Use
  Company Number: GB-GLAXOSMITHKLINE-B0315700A

PATIENT
  Age: 49 Year
  Sex: Female

DRUGS (1)
  1. SEROXAT [Suspect]
     Indication: PANIC DISORDER
     Route: 065
     Dates: start: 20010706

REACTIONS (11)
  - ANKLE FRACTURE [None]
  - BACK DISORDER [None]
  - BREAST CANCER [None]
  - CONTUSION [None]
  - INTENTIONAL SELF-INJURY [None]
  - LACERATION [None]
  - LUNG INJURY [None]
  - MENTAL IMPAIRMENT [None]
  - PERSONALITY CHANGE [None]
  - SPINAL FRACTURE [None]
  - SUICIDE ATTEMPT [None]
